FAERS Safety Report 11810391 (Version 1)
Quarter: 2015Q4

REPORT INFORMATION
  Report Type: Spontaneous
  Country: US (occurrence: US)
  Receive Date: 20151208
  Receipt Date: 20151208
  Transmission Date: 20160305
  Serious: Yes (Disabling, Other)
  Sender: FDA-Public Use
  Company Number: US-MYLANLABS-2015M1043994

PATIENT

DRUGS (2)
  1. LEVOFLOXACIN. [Suspect]
     Active Substance: LEVOFLOXACIN
     Indication: SINUSITIS
     Dosage: 750 MG/DAY (7-DAY COURSE)
     Route: 065
  2. LEVOFLOXACIN. [Suspect]
     Active Substance: LEVOFLOXACIN
     Dosage: 750 MG/DAY (10-DAY COURSE)
     Route: 065

REACTIONS (17)
  - Cognitive disorder [Unknown]
  - Gastrointestinal disorder [Unknown]
  - Dyspnoea [Unknown]
  - Affective disorder [Unknown]
  - Fatigue [Unknown]
  - Tendon disorder [Unknown]
  - Cardiovascular disorder [Unknown]
  - Visual impairment [Unknown]
  - Arthralgia [Unknown]
  - Muscle atrophy [Unknown]
  - Dry eye [Unknown]
  - Bedridden [Unknown]
  - Sleep disorder [Unknown]
  - Muscle spasms [Unknown]
  - Peripheral coldness [Unknown]
  - Metabolic disorder [Unknown]
  - Neuropathy peripheral [Unknown]
